FAERS Safety Report 24401141 (Version 3)
Quarter: 2024Q4

REPORT INFORMATION
  Report Type: Report from Study
  Country: US (occurrence: US)
  Receive Date: 20241006
  Receipt Date: 20241124
  Transmission Date: 20250114
  Serious: Yes (Hospitalization)
  Sender: ABBVIE
  Company Number: US-ABBVIE-5946654

PATIENT
  Age: 64 Year
  Sex: Female
  Weight: 63 kg

DRUGS (4)
  1. HUMIRA [Suspect]
     Active Substance: ADALIMUMAB
     Indication: Colitis ulcerative
     Dosage: CITRATE FREE?FORM STRENGTH 40MG/ML
     Route: 058
     Dates: start: 20240814, end: 20240828
  2. HUMIRA [Suspect]
     Active Substance: ADALIMUMAB
     Dosage: CITRATE FREE?FIRST ADMIN DATE 2024?FORM STRENGTH 40MG/ML
     Route: 058
     Dates: end: 20240911
  3. CALCIUM [Concomitant]
     Active Substance: CALCIUM
     Indication: Product used for unknown indication
  4. IRON [Concomitant]
     Active Substance: IRON
     Indication: Product used for unknown indication

REACTIONS (5)
  - Pulmonary embolism [Recovering/Resolving]
  - Weight decreased [Unknown]
  - Alopecia [Not Recovered/Not Resolved]
  - Peripheral swelling [Unknown]
  - Gait inability [Unknown]

NARRATIVE: CASE EVENT DATE: 20240101
